FAERS Safety Report 15861026 (Version 2)
Quarter: 2025Q4

REPORT INFORMATION
  Report Type: Spontaneous
  Country: GB (occurrence: GB)
  Receive Date: 20190124
  Receipt Date: 20251111
  Transmission Date: 20260117
  Serious: Yes (Hospitalization, Other)
  Sender: AUROBINDO
  Company Number: GB-AUROBINDO-AUR-APL-2019-002764

PATIENT
  Age: 53 Year
  Sex: Female

DRUGS (5)
  1. BUPIVACAINE HYDROCHLORIDE [Suspect]
     Active Substance: BUPIVACAINE HYDROCHLORIDE
     Indication: Greater trochanteric pain syndrome
     Dosage: UNK (MIXED WITH 5 ML 0.5% BUPIVACAINE)
     Route: 042
  2. COBICISTAT [Suspect]
     Active Substance: COBICISTAT
     Indication: HIV infection
     Dosage: UNK
     Route: 065
  3. TRIAMCINOLONE [Suspect]
     Active Substance: TRIAMCINOLONE
     Indication: Greater trochanteric pain syndrome
     Dosage: UNK
     Route: 042
  4. TRIAMCINOLONE [Suspect]
     Active Substance: TRIAMCINOLONE
     Dosage: 40 MILLIGRAM
     Route: 065
  5. DOLUTEGRAVIR [Concomitant]
     Active Substance: DOLUTEGRAVIR
     Indication: Product used for unknown indication
     Dosage: UNK
     Route: 065

REACTIONS (1)
  - Adrenal insufficiency [Recovered/Resolved]
